FAERS Safety Report 9632080 (Version 2)
Quarter: 2013Q4

REPORT INFORMATION
  Report Type: Spontaneous
  Country: US (occurrence: US)
  Receive Date: 20131018
  Receipt Date: 20131111
  Transmission Date: 20140711
  Serious: No
  Sender: FDA-Public Use
  Company Number: US-009507513-1310USA007300

PATIENT
  Age: 2 Year
  Sex: Female
  Weight: 14.97 kg

DRUGS (1)
  1. MIRALAX [Suspect]
     Indication: PROCTALGIA
     Dosage: 8.5 G, QD
     Route: 048
     Dates: start: 201306

REACTIONS (3)
  - Incorrect drug administration duration [Unknown]
  - Drug administered to patient of inappropriate age [Unknown]
  - Off label use [Unknown]
